FAERS Safety Report 4276655-1 (Version None)
Quarter: 2004Q1

REPORT INFORMATION
  Report Type: 
  Country: None (occurrence: None)
  Receive Date: 20040120
  Receipt Date: 20040115
  Transmission Date: 20041129
  Serious: Yes (Hospitalization)
  Sender: FDA-Public Use
  Company Number: TPA2003A01361

PATIENT
  Age: 75 Year
  Sex: Female
  Weight: 79.3795 kg

DRUGS (7)
  1. ACTOS [Suspect]
     Indication: DIABETES MELLITUS NON-INSULIN-DEPENDENT
     Dosage: 30 MG, 1 IN 1 D, PER ORAL
     Route: 048
     Dates: start: 20010930
  2. ATENOLOL [Concomitant]
  3. UNIRETIC (PRIMOX PLUS) [Concomitant]
  4. SYNTHROID [Concomitant]
  5. DILTIAZEM CD (DILTIAZEM HYDROCHLORIDE) [Concomitant]
  6. AMARYL [Concomitant]
  7. ASPIRIN [Concomitant]

REACTIONS (3)
  - ASTHENIA [None]
  - HYPERTENSION [None]
  - LOSS OF CONSCIOUSNESS [None]
